FAERS Safety Report 18506015 (Version 5)
Quarter: 2022Q2

REPORT INFORMATION
  Report Type: Spontaneous
  Country: US (occurrence: US)
  Receive Date: 20201116
  Receipt Date: 20220407
  Transmission Date: 20220721
  Serious: No
  Sender: FDA-Public Use
  Company Number: US-PFIZER INC-2020246318

PATIENT
  Age: 12 Year
  Sex: Female
  Weight: 48.08 kg

DRUGS (1)
  1. GENOTROPIN [Suspect]
     Active Substance: SOMATROPIN
     Indication: Blood growth hormone
     Dosage: 1.4 MG, 1X/DAY
     Dates: start: 202007

REACTIONS (3)
  - Product prescribing error [Unknown]
  - Drug dose omission by device [Not Recovered/Not Resolved]
  - Device leakage [Unknown]
